FAERS Safety Report 19222899 (Version 1)
Quarter: 2021Q2

REPORT INFORMATION
  Report Type: Spontaneous
  Country: US (occurrence: US)
  Receive Date: 20210506
  Receipt Date: 20210506
  Transmission Date: 20210717
  Serious: Yes (Death, Hospitalization)
  Sender: FDA-Public Use
  Company Number: None

PATIENT
  Age: 71 Year
  Sex: Female

DRUGS (19)
  1. GABAPENTIN. [Concomitant]
     Active Substance: GABAPENTIN
  2. LORAZEPAM. [Concomitant]
     Active Substance: LORAZEPAM
  3. SODIUM BICARBONATE. [Concomitant]
     Active Substance: SODIUM BICARBONATE
  4. ACETAMINOPHEN SUPPOSITORY [Concomitant]
     Active Substance: ACETAMINOPHEN
  5. CYCLOSPORINE MODIFIED [Suspect]
     Active Substance: CYCLOSPORINE
     Indication: LUNG TRANSPLANT
     Route: 048
     Dates: start: 20191125
  6. CYCLOSPORINE MODIFIED [Suspect]
     Active Substance: CYCLOSPORINE
     Indication: LUNG TRANSPLANT
     Route: 048
     Dates: start: 20191125
  7. FERROUS SULFATE. [Concomitant]
     Active Substance: FERROUS SULFATE
  8. CALCITROL [Concomitant]
  9. CALCIUM + VITAMIN D [Concomitant]
     Active Substance: CALCIUM\VITAMIN D
  10. NICINAMIDE [Concomitant]
  11. LISINOPRIL. [Concomitant]
     Active Substance: LISINOPRIL
  12. METOPROLOL. [Concomitant]
     Active Substance: METOPROLOL
  13. ATOVAQUONE. [Concomitant]
     Active Substance: ATOVAQUONE
  14. FENTANYL TRANSDERMAL SYSTEM [Concomitant]
     Active Substance: FENTANYL
  15. FLUOXETINE [Concomitant]
     Active Substance: FLUOXETINE HYDROCHLORIDE
  16. AMLODIPINE [Concomitant]
     Active Substance: AMLODIPINE BESYLATE
  17. HALOPERIDOL. [Concomitant]
     Active Substance: HALOPERIDOL
  18. HYDROMORPHONE [Concomitant]
     Active Substance: HYDROMORPHONE
  19. PREDNISONE. [Concomitant]
     Active Substance: PREDNISONE

REACTIONS (2)
  - Hip fracture [None]
  - Fall [None]

NARRATIVE: CASE EVENT DATE: 20210430
